FAERS Safety Report 10906987 (Version 1)
Quarter: 2015Q1

REPORT INFORMATION
  Report Type: Spontaneous
  Country: None (occurrence: None)
  Receive Date: 20150309
  Receipt Date: 20150309
  Transmission Date: 20150721
  Serious: Yes (Hospitalization)
  Sender: FDA-Public Use
  Company Number: None

PATIENT
  Age: 63 Year
  Sex: Female
  Weight: 64 kg

DRUGS (2)
  1. FLUCONAZOLE. [Concomitant]
     Active Substance: FLUCONAZOLE
  2. BACTRIM DS [Suspect]
     Active Substance: SULFAMETHOXAZOLE\TRIMETHOPRIM
     Indication: SEPSIS
     Dosage: 1 TABLET
     Route: 048
     Dates: start: 20140511, end: 20140514

REACTIONS (1)
  - Rash [None]

NARRATIVE: CASE EVENT DATE: 20140514
